FAERS Safety Report 6759283-5 (Version None)
Quarter: 2010Q2

REPORT INFORMATION
  Report Type: 
  Country: None (occurrence: None)
  Receive Date: 20100607
  Receipt Date: 20100526
  Transmission Date: 20101027
  Serious: Yes (Other)
  Sender: FDA-Public Use
  Company Number: DE-PFIZER INC-2010065828

PATIENT
  Age: 71 Year
  Sex: Male

DRUGS (1)
  1. LYRICA [Suspect]
     Dosage: 2 X 150 MG DAILY
     Dates: start: 20100515

REACTIONS (2)
  - PHLEBITIS [None]
  - VISUAL IMPAIRMENT [None]
